FAERS Safety Report 5730373-9 (Version None)
Quarter: 2008Q2

REPORT INFORMATION
  Report Type: 
  Country: None (occurrence: None)
  Receive Date: 20080502
  Receipt Date: 20080429
  Transmission Date: 20081010
  Serious: Yes (Other)
  Sender: FDA-Public Use
  Company Number: 19189

PATIENT
  Age: 62 Year
  Sex: Female

DRUGS (6)
  1. VINCRISTINE [Suspect]
     Indication: T-CELL LYMPHOMA
     Dosage: 2 MG PER_CYCLE; IV
     Route: 042
     Dates: start: 20080201, end: 20080401
  2. OMEPRAZOLE [Concomitant]
  3. ACYCLOVIR [Concomitant]
  4. COTRIM [Concomitant]
  5. FUROSEMIDE [Concomitant]
  6. PREDNISOLONE [Concomitant]

REACTIONS (4)
  - OEDEMA PERIPHERAL [None]
  - PAIN IN EXTREMITY [None]
  - PALMAR ERYTHEMA [None]
  - SKIN EXFOLIATION [None]
